FAERS Safety Report 5741126-X (Version None)
Quarter: 2008Q2

REPORT INFORMATION
  Report Type: 
  Country: None (occurrence: None)
  Receive Date: 20080516
  Receipt Date: 20080506
  Transmission Date: 20081010
  Serious: Yes (Other)
  Sender: FDA-Public Use
  Company Number: US-PFIZER INC-2008040326

PATIENT
  Sex: Male
  Weight: 91 kg

DRUGS (4)
  1. CHANTIX [Suspect]
     Indication: SMOKING CESSATION THERAPY
  2. VITAMINS [Concomitant]
  3. ACETYLSALICYLIC ACID SRT [Concomitant]
  4. XANAX [Concomitant]

REACTIONS (1)
  - HOMICIDAL IDEATION [None]
